FAERS Safety Report 19863739 (Version 4)
Quarter: 2021Q4

REPORT INFORMATION
  Report Type: Report from Study
  Country: None (occurrence: LB)
  Receive Date: 20210922
  Receipt Date: 20211007
  Transmission Date: 20220304
  Serious: Yes (Hospitalization, Other)
  Sender: FDA-Public Use
  Company Number: LB-ABBVIE-21K-093-4087046-00

PATIENT
  Age: 63 Year
  Sex: Female

DRUGS (9)
  1. SKYRIZI [Suspect]
     Active Substance: RISANKIZUMAB-RZAA
     Indication: Psoriasis
     Dosage: 75MG/0.83ML SYRINGE, 2 INJECTIONS
     Route: 058
     Dates: start: 20210902, end: 20210902
  2. BIONEX [Concomitant]
     Indication: Diuretic therapy
  3. DISGREN [Concomitant]
     Indication: Anticoagulant therapy
  4. DILTIAZEM HYDROCHLORIDE [Concomitant]
     Active Substance: DILTIAZEM HYDROCHLORIDE
     Indication: Product used for unknown indication
  5. SPIRIVA [Concomitant]
     Active Substance: TIOTROPIUM BROMIDE MONOHYDRATE
     Indication: Product used for unknown indication
  6. SYMBICORT [Concomitant]
     Active Substance: BUDESONIDE\FORMOTEROL FUMARATE DIHYDRATE
     Indication: Product used for unknown indication
  7. NEBIVOLOL [Concomitant]
     Active Substance: NEBIVOLOL
     Indication: Product used for unknown indication
  8. GLUCOPHAGE [Concomitant]
     Active Substance: METFORMIN HYDROCHLORIDE
     Indication: Product used for unknown indication
     Dosage: 850 2 TABS PER DAY
  9. PANTOMAX [Concomitant]
     Indication: Product used for unknown indication

REACTIONS (13)
  - Oxygen saturation decreased [Recovered/Resolved]
  - Carbon dioxide increased [Recovered/Resolved]
  - Immunodeficiency [Recovered/Resolved]
  - Oxygen saturation decreased [Not Recovered/Not Resolved]
  - Carbon dioxide increased [Not Recovered/Not Resolved]
  - Lung consolidation [Recovered/Resolved]
  - Pulmonary hilar enlargement [Not Recovered/Not Resolved]
  - Lung consolidation [Recovered/Resolved]
  - Pleurisy [Recovered/Resolved]
  - Emphysema [Not Recovered/Not Resolved]
  - Cardiomegaly [Not Recovered/Not Resolved]
  - Infection [Recovered/Resolved]
  - Cardiac arrest [Recovered/Resolved]

NARRATIVE: CASE EVENT DATE: 20210913
